FAERS Safety Report 8173033-X (Version None)
Quarter: 2012Q1

REPORT INFORMATION
  Report Type: 
  Country: None (occurrence: None)
  Receive Date: 20120229
  Receipt Date: 20120221
  Transmission Date: 20120608
  Serious: Yes (Hospitalization)
  Sender: FDA-Public Use
  Company Number: US-US-EMD SERONO, INC.-7114688

PATIENT
  Sex: Female

DRUGS (4)
  1. TRILEPTAL [Concomitant]
     Indication: TRIGEMINAL NEURALGIA
  2. LYRICA [Concomitant]
     Indication: TRIGEMINAL NEURALGIA
  3. REBIF [Suspect]
     Indication: SECONDARY PROGRESSIVE MULTIPLE SCLEROSIS
  4. TEGRETOL [Concomitant]
     Indication: TRIGEMINAL NEURALGIA

REACTIONS (2)
  - INJECTION SITE PAIN [None]
  - INJECTION SITE ERYTHEMA [None]
